FAERS Safety Report 9354321 (Version 2)
Quarter: 2013Q3

REPORT INFORMATION
  Report Type: Spontaneous
  Country: US (occurrence: US)
  Receive Date: 20130618
  Receipt Date: 20130717
  Transmission Date: 20140515
  Serious: No
  Sender: FDA-Public Use
  Company Number: US-ABBOTT-13P-163-1105559-00

PATIENT
  Sex: Male
  Weight: 95.34 kg

DRUGS (4)
  1. SYNTHROID [Suspect]
     Indication: BLOOD THYROID STIMULATING HORMONE ABNORMAL
     Dates: start: 20060829
  2. UNKNOWN GENERIC DRUGS [Suspect]
     Indication: PRODUCT USED FOR UNKNOWN INDICATION
  3. IBUPROFEN [Concomitant]
     Indication: PAIN
  4. XYZAL [Concomitant]
     Indication: HYPERSENSITIVITY

REACTIONS (3)
  - Drug ineffective [Not Recovered/Not Resolved]
  - Drug ineffective [Unknown]
  - Thyroid function test abnormal [Recovering/Resolving]
